FAERS Safety Report 6733909-4 (Version None)
Quarter: 2010Q2

REPORT INFORMATION
  Report Type: 
  Country: None (occurrence: None)
  Receive Date: 20100518
  Receipt Date: 20100504
  Transmission Date: 20101027
  Serious: Yes (Death, Life-Threatening, Hospitalization)
  Sender: FDA-Public Use
  Company Number: LEO-2010-00212

PATIENT
  Age: 61 Year
  Sex: Female
  Weight: 64 kg

DRUGS (4)
  1. INNOHEP [Suspect]
     Indication: VENA CAVA THROMBOSIS
     Dosage: SUBCUTANEOUS
     Route: 058
     Dates: start: 20091218, end: 20100121
  2. SUNITINIB MALATE [Suspect]
     Indication: RENAL CELL CARCINOMA
     Dates: start: 20091228, end: 20100121
  3. CORIK (TRANDOLAPRIL) [Concomitant]
  4. ACTOS [Concomitant]

REACTIONS (6)
  - ABDOMINAL WALL HAEMATOMA [None]
  - DIALYSIS [None]
  - DISSEMINATED INTRAVASCULAR COAGULATION [None]
  - HAEMORRHAGE [None]
  - RENAL FAILURE ACUTE [None]
  - SUBILEUS [None]
